FAERS Safety Report 24330394 (Version 1)
Quarter: 2024Q3

REPORT INFORMATION
  Report Type: Spontaneous
  Country: GB (occurrence: GB)
  Receive Date: 20240918
  Receipt Date: 20240918
  Transmission Date: 20241017
  Serious: Yes (Other)
  Sender: CIPLA
  Company Number: GB-MHRA-TPP26022338C7949041YC1725392840562

PATIENT

DRUGS (9)
  1. FINASTERIDE [Suspect]
     Active Substance: FINASTERIDE
     Indication: Ill-defined disorder
     Dosage: 5 MILLIGRAM, QD
     Route: 065
     Dates: start: 20240508
  2. CLARITHROMYCIN [Concomitant]
     Active Substance: CLARITHROMYCIN
     Indication: Ill-defined disorder
     Dosage: 1 DOSAGE FORM, BID TAKE ONE TABLET TWICE A DAY FOR SEVEN DAYS,
     Route: 065
     Dates: start: 20240614, end: 20240621
  3. AMOXICILLIN [Concomitant]
     Active Substance: AMOXICILLIN
     Indication: Ill-defined disorder
     Dosage: 1 DOSAGE FORM, TID, TAKE ONE CAPSULE THREE TIMES A DAY FOR SEVEN DAYS
     Route: 065
     Dates: start: 20240508
  4. CARBOCYSTEINE [Concomitant]
     Active Substance: CARBOCYSTEINE
     Indication: Ill-defined disorder
     Dosage: UNK 1-3 THREE TIMES A DAY, (TID)
     Route: 065
     Dates: start: 20240508
  5. CLOPIDOGREL [Concomitant]
     Active Substance: CLOPIDOGREL BISULFATE
     Indication: Ill-defined disorder
     Dosage: 1 DOSAGE FORM, QD, TAKE ONE ONCE DAILY
     Route: 065
     Dates: start: 20240508
  6. LANSOPRAZOLE [Concomitant]
     Active Substance: LANSOPRAZOLE
     Indication: Ill-defined disorder
     Dosage: 1 DOSAGE FORM, QD, TAKE ONE ONCE DAILY
     Route: 065
     Dates: start: 20240508
  7. PRAVASTATIN [Concomitant]
     Active Substance: PRAVASTATIN
     Indication: Ill-defined disorder
     Dosage: 1 DOSAGE FORM, QD, ONE TO BE TAKEN IN THE MORNING
     Route: 065
     Dates: start: 20240508
  8. TAMSULOSIN HYDROCHLORIDE [Concomitant]
     Active Substance: TAMSULOSIN HYDROCHLORIDE
     Indication: Ill-defined disorder
     Dosage: 1 DOSAGE FORM, QD, TAKE ONE CAPSULE EACH DAY
     Route: 065
     Dates: start: 20240508
  9. TRANEXAMIC ACID [Concomitant]
     Active Substance: TRANEXAMIC ACID
     Indication: Ill-defined disorder
     Dosage: TAKE ONE THREE TIMES A DAY WHEN COUGHING UP BLOOD
     Route: 065
     Dates: start: 20240508

REACTIONS (1)
  - Depressed mood [Unknown]
